FAERS Safety Report 19110578 (Version 2)
Quarter: 2021Q2

REPORT INFORMATION
  Report Type: Report from Study
  Country: GB (occurrence: GB)
  Receive Date: 20210408
  Receipt Date: 20210621
  Transmission Date: 20210717
  Serious: Yes (Death)
  Sender: FDA-Public Use
  Company Number: GB-KARYOPHARM-2021KPT000142

PATIENT
  Age: 65 Year
  Sex: Female

DRUGS (1)
  1. SELINEXOR [Suspect]
     Active Substance: SELINEXOR
     Indication: PLASMA CELL MYELOMA
     Dosage: 100 MG, WEEKLY
     Route: 048
     Dates: start: 20201130

REACTIONS (3)
  - Cytopenia [Unknown]
  - Neuropathy peripheral [Unknown]
  - Plasma cell myeloma [Fatal]
